FAERS Safety Report 17880228 (Version 1)
Quarter: 2020Q2

REPORT INFORMATION
  Report Type: Spontaneous
  Country: US (occurrence: US)
  Receive Date: 20200610
  Receipt Date: 20200610
  Transmission Date: 20200714
  Serious: No
  Sender: FDA-Public Use
  Company Number: None

PATIENT
  Age: 71 Year
  Sex: Male
  Weight: 88.45 kg

DRUGS (20)
  1. RANITIDINE 150MG TAB HCL [Suspect]
     Active Substance: RANITIDINE
     Indication: GASTROOESOPHAGEAL REFLUX DISEASE
     Route: 048
     Dates: start: 2010, end: 2019
  2. IBUPROFEN. [Concomitant]
     Active Substance: IBUPROFEN
  3. PROPRANOLOL HCI [Concomitant]
  4. CARAFATE [Concomitant]
     Active Substance: SUCRALFATE
  5. PANTOPRAZOLE SODIUM. [Concomitant]
     Active Substance: PANTOPRAZOLE SODIUM
  6. FLUTICASONE PROPLONATE [Concomitant]
  7. MORPHINE SULFATE (CONCENTRAT20 MG/ML [Concomitant]
  8. TAMSULOSIN HCI [Concomitant]
     Active Substance: TAMSULOSIN HYDROCHLORIDE
  9. TRAZODONE HCI [Concomitant]
  10. CYPROHEPTADINE HCI [Concomitant]
  11. LEVAQUIN [Concomitant]
     Active Substance: LEVOFLOXACIN
  12. CLOPIDOGREL BISULFATE. [Concomitant]
     Active Substance: CLOPIDOGREL BISULFATE
  13. COMPAZINE [Concomitant]
     Active Substance: PROCHLORPERAZINE MALEATE
  14. DECADRON [Concomitant]
     Active Substance: DEXAMETHASONE
  15. METOPROLOL TARTRATE. [Concomitant]
     Active Substance: METOPROLOL TARTRATE
  16. ZOFRAN [Concomitant]
     Active Substance: ONDANSETRON HYDROCHLORIDE
  17. XARELTO [Concomitant]
     Active Substance: RIVAROXABAN
  18. LEVOTHYROXINE SODIUM. [Concomitant]
     Active Substance: LEVOTHYROXINE SODIUM
  19. ZANTAC 150 MAXIUM STRENGTH [Concomitant]
  20. MAGIC MOUTH WASH [Concomitant]
     Active Substance: ALUMINUM HYDROXIDE\DIMETHICONE\DIPHENHYDRAMINE\LIDOCAINE\MAGNESIUM HYDROXIDE

REACTIONS (2)
  - Oesophageal carcinoma [None]
  - Colon cancer stage IV [None]

NARRATIVE: CASE EVENT DATE: 20190226
